FAERS Safety Report 12750147 (Version 1)
Quarter: 2016Q3

REPORT INFORMATION
  Report Type: Report from Study
  Country: IT (occurrence: IT)
  Receive Date: 20160916
  Receipt Date: 20160916
  Transmission Date: 20161109
  Serious: Yes (Other)
  Sender: FDA-Public Use
  Company Number: IT-AMGEN-ITANI2016123750

PATIENT
  Age: 72 Year
  Sex: Female
  Weight: 56 kg

DRUGS (1)
  1. PANITUMUMAB [Suspect]
     Active Substance: PANITUMUMAB
     Indication: COLORECTAL CANCER METASTATIC
     Dosage: 225 MG, Q2WK
     Route: 042
     Dates: start: 20160806, end: 20160806

REACTIONS (3)
  - Stomatitis [Recovered/Resolved]
  - Skin toxicity [Recovered/Resolved]
  - Genital rash [Recovered/Resolved]

NARRATIVE: CASE EVENT DATE: 20160810
